FAERS Safety Report 22068721 (Version 3)
Quarter: 2023Q1

REPORT INFORMATION
  Report Type: Report from Study
  Country: JP (occurrence: JP)
  Receive Date: 20230307
  Receipt Date: 20230328
  Transmission Date: 20230417
  Serious: Yes (Hospitalization, Other)
  Sender: FDA-Public Use
  Company Number: JP-GLAXOSMITHKLINE-JP2022JPN150733

PATIENT

DRUGS (19)
  1. BELIMUMAB [Suspect]
     Active Substance: BELIMUMAB
     Indication: Systemic lupus erythematosus
     Dosage: 200 MG
     Route: 058
     Dates: start: 20181210
  2. BELIMUMAB [Suspect]
     Active Substance: BELIMUMAB
     Dosage: 200 MG
     Route: 058
     Dates: start: 20200316, end: 20200504
  3. BELIMUMAB [Suspect]
     Active Substance: BELIMUMAB
     Dosage: 200 MG, WE
     Route: 058
     Dates: start: 20200617
  4. PREDNISOLONE [Suspect]
     Active Substance: PREDNISOLONE
     Indication: Systemic lupus erythematosus
     Dosage: 4 MG, 1D
     Route: 048
  5. PREDNISOLONE [Suspect]
     Active Substance: PREDNISOLONE
     Dosage: 4 MG, QD, AFTER BREAKFAST
     Route: 048
     Dates: start: 20200316
  6. CELLCEPT [Suspect]
     Active Substance: MYCOPHENOLATE MOFETIL
     Indication: Systemic lupus erythematosus
     Dosage: 1.5 G, 1D
     Route: 048
     Dates: start: 20150928
  7. CELLCEPT [Suspect]
     Active Substance: MYCOPHENOLATE MOFETIL
     Dosage: 750 MG, BID EVERY 12 HOURS
     Route: 048
     Dates: start: 20200316
  8. PLAQUENIL [Suspect]
     Active Substance: HYDROXYCHLOROQUINE SULFATE
     Indication: Systemic lupus erythematosus
     Dosage: 300 MG, 1D
     Route: 048
     Dates: start: 20190513
  9. PLAQUENIL [Suspect]
     Active Substance: HYDROXYCHLOROQUINE SULFATE
     Dosage: 200 MG, QOD ONCE DAILY AFTER BREAKFAST
     Route: 048
     Dates: start: 20200316
  10. PLAQUENIL [Suspect]
     Active Substance: HYDROXYCHLOROQUINE SULFATE
     Dosage: 200 MG, QOD, ONCE DAILY AFTER BREAKFAST
     Route: 048
     Dates: start: 20200316
  11. PENTASA [Suspect]
     Active Substance: MESALAMINE
     Indication: Rectal ulcer
     Dosage: 2 G, 1D
     Route: 048
     Dates: start: 20150613
  12. NOBELZIN TABLETS [Concomitant]
     Dosage: 25 MG, QD
     Dates: start: 20200316
  13. MUCOSTA TABLETS [Concomitant]
     Dosage: 100 MG, QD
     Dates: start: 20220316
  14. LOXOPROFEN SODIUM DIHYDRATE [Concomitant]
     Active Substance: LOXOPROFEN SODIUM DIHYDRATE
     Dosage: 100 MG, QD
     Dates: start: 20220316
  15. CRAVIT TABLETS [Concomitant]
     Dosage: 500 MG, QD
     Dates: start: 20220316
  16. EDIROL CAPSULE [Concomitant]
     Dosage: 0.75 ?G, QD
     Dates: start: 20200316
  17. BIOFERMIN POWDER [Concomitant]
     Dosage: 1 MG, TID
     Dates: start: 20200316
  18. MAGNESIUM OXIDE [Concomitant]
     Active Substance: MAGNESIUM OXIDE
     Dosage: 330 MG, TID
     Dates: start: 20200316
  19. LOXOPROFEN SODIUM [Concomitant]
     Active Substance: LOXOPROFEN SODIUM
     Dosage: 60 MG, TID
     Dates: start: 20200316

REACTIONS (2)
  - Oophoritis [Recovering/Resolving]
  - Ovarian cyst [Recovering/Resolving]

NARRATIVE: CASE EVENT DATE: 20200502
